FAERS Safety Report 5397330-6 (Version None)
Quarter: 2007Q3

REPORT INFORMATION
  Report Type: 
  Country: None (occurrence: None)
  Receive Date: 20070726
  Receipt Date: 20070720
  Transmission Date: 20080115
  Serious: Yes (Other)
  Sender: FDA-Public Use
  Company Number: JP-SP-2007-00595

PATIENT
  Age: 78 Year
  Sex: Male

DRUGS (2)
  1. IMMUCYST [Suspect]
     Indication: BLADDER CANCER
     Route: 043
     Dates: start: 20070112, end: 20070129
  2. IMMUCYST [Suspect]
     Route: 043
     Dates: start: 20070112, end: 20070129

REACTIONS (5)
  - DECREASED APPETITE [None]
  - DISSEMINATED TUBERCULOSIS [None]
  - DRUG DISPENSING ERROR [None]
  - FATIGUE [None]
  - PYREXIA [None]
